FAERS Safety Report 8288144-8 (Version None)
Quarter: 2012Q2

REPORT INFORMATION
  Report Type: 
  Country: None (occurrence: None)
  Receive Date: 20120416
  Receipt Date: 20120410
  Transmission Date: 20120825
  Serious: Yes (Hospitalization, Other)
  Sender: FDA-Public Use
  Company Number: US-BAYER-2012-036024

PATIENT
  Age: 49 Year
  Sex: Male
  Weight: 80 kg

DRUGS (22)
  1. PRECEDEX [Concomitant]
     Dosage: 0.6 MICROGRAMS/ KILOGRAMS/HOUR
     Route: 042
     Dates: start: 20070208
  2. FRESH FROZEN PLASMA [Concomitant]
     Dosage: 4 U, UNK
  3. ETOMIDATE [Concomitant]
     Dosage: 8 MG, UNK
     Route: 042
     Dates: start: 20070208
  4. VERSED [Concomitant]
     Dosage: 10 MG, UNK
     Route: 042
     Dates: start: 20070208
  5. ANCEF [Concomitant]
     Dosage: 1 G, UNK
     Route: 042
     Dates: start: 20070208
  6. BUMEX [Concomitant]
  7. TRASYLOL [Suspect]
     Indication: AORTIC DISSECTION
     Dosage: 3 ML, TEST DOSE
     Route: 042
     Dates: start: 20070208, end: 20070208
  8. PROTAMINE SULFATE [Concomitant]
     Dosage: 470 MG, UNK
     Route: 042
     Dates: start: 20070208
  9. UNCODEABLE ^UNCLASSIFIABLE^ [Concomitant]
     Dosage: 1350 ML, BYPASS
     Dates: start: 20070208
  10. TRASYLOL [Suspect]
     Dosage: 50 ML/HOUR INFUSION
     Route: 042
     Dates: start: 20070208, end: 20070208
  11. SEVOFLURANE [Concomitant]
  12. HEPARIN [Concomitant]
     Dosage: 33000 U, UNK
     Route: 042
     Dates: start: 20070208
  13. HEPARIN [Concomitant]
     Dosage: 58000 UNK, BYPASS
     Dates: start: 20070208
  14. HEPARIN [Concomitant]
  15. NIPRIDE [Concomitant]
     Dosage: UNK
     Route: 042
     Dates: start: 20070208
  16. TRASYLOL [Suspect]
     Dosage: 200 ML, CADRIOPULMONARY BYPASS PRIME
     Route: 042
     Dates: start: 20070208, end: 20070208
  17. UNCODEABLE ^UNCLASSIFIABLE^ [Concomitant]
     Dosage: TITRATED
     Route: 042
     Dates: start: 20070208
  18. LIDOCAINE [Concomitant]
     Dosage: TITRATED
     Route: 042
     Dates: start: 20070208
  19. MANNITOL [Concomitant]
     Dosage: 200 ML, UNK
     Dates: start: 20070208
  20. PLATELETS [Concomitant]
     Dosage: 6 U, UNK
  21. TRASYLOL [Suspect]
     Dosage: 200 ML, LOADING DOSE
     Route: 042
     Dates: start: 20070208, end: 20070208
  22. RED BLOOD CELLS [Concomitant]
     Dosage: 4 U, UNK

REACTIONS (6)
  - RENAL IMPAIRMENT [None]
  - RENAL FAILURE [None]
  - MULTI-ORGAN FAILURE [None]
  - RESPIRATORY FAILURE [None]
  - PLEURAL EFFUSION [None]
  - INFECTION [None]
